FAERS Safety Report 5641659-0 (Version None)
Quarter: 2008Q1

REPORT INFORMATION
  Report Type: 
  Country: None (occurrence: None)
  Receive Date: 20080227
  Receipt Date: 20080215
  Transmission Date: 20080703
  Serious: Yes (Other)
  Sender: FDA-Public Use
  Company Number: IT-TEVA-167761ISR

PATIENT
  Sex: Female

DRUGS (6)
  1. FLUOROURACIL [Suspect]
     Indication: COLON NEOPLASM
     Route: 042
     Dates: start: 20070730, end: 20071218
  2. OXALIPLATIN [Suspect]
     Indication: COLON NEOPLASM
     Route: 042
     Dates: start: 20070730, end: 20071218
  3. CALCIUM LEVOFOLINATE [Suspect]
     Indication: COLON NEOPLASM
     Route: 042
     Dates: start: 20070730, end: 20071218
  4. GRANISETRON [Concomitant]
     Route: 048
  5. METOCLOPRAMIDE [Concomitant]
     Route: 048
  6. DEXAMETHASONE TAB [Concomitant]
     Route: 048

REACTIONS (2)
  - DYSPNOEA [None]
  - INTERSTITIAL LUNG DISEASE [None]
